FAERS Safety Report 13053921 (Version 3)
Quarter: 2016Q4

REPORT INFORMATION
  Report Type: Report from Study
  Country: GR (occurrence: GR)
  Receive Date: 20161222
  Receipt Date: 20161230
  Transmission Date: 20170207
  Serious: Yes (Other)
  Sender: FDA-Public Use
  Company Number: PHHY2016GR166443

PATIENT
  Age: 30 Year
  Sex: Male

DRUGS (1)
  1. GILENYA [Suspect]
     Active Substance: FINGOLIMOD HYDROCHLORIDE
     Indication: MULTIPLE SCLEROSIS
     Dosage: UNK
     Route: 065
     Dates: start: 201409, end: 201601

REACTIONS (15)
  - T-lymphocyte count decreased [Recovered/Resolved]
  - Muscle spasticity [Recovered/Resolved with Sequelae]
  - Nervous system disorder [Recovered/Resolved with Sequelae]
  - Multiple sclerosis relapse [Unknown]
  - Amnesia [Recovered/Resolved with Sequelae]
  - Anorectal disorder [Unknown]
  - Hypoaesthesia [Recovered/Resolved with Sequelae]
  - Abasia [Unknown]
  - Rebound effect [Recovered/Resolved with Sequelae]
  - Paraparesis [Unknown]
  - Incontinence [Recovered/Resolved with Sequelae]
  - Cognitive disorder [Unknown]
  - Coordination abnormal [Recovered/Resolved with Sequelae]
  - Nystagmus [Recovered/Resolved with Sequelae]
  - Ataxia [Recovered/Resolved with Sequelae]
